FAERS Safety Report 14336264 (Version 2)
Quarter: 2018Q1

REPORT INFORMATION
  Report Type: Spontaneous
  Country: IL (occurrence: IL)
  Receive Date: 20171229
  Receipt Date: 20180301
  Transmission Date: 20180509
  Serious: Yes (Hospitalization, Other)
  Sender: FDA-Public Use
  Company Number: IL-REGENERON PHARMACEUTICALS, INC.-2017-29494

PATIENT

DRUGS (2)
  1. EYLEA [Suspect]
     Active Substance: AFLIBERCEPT
     Indication: PRODUCT USED FOR UNKNOWN INDICATION
     Dosage: NO FURTHER TREATMENT DETAILS PROVIDED.
  2. EYLEA [Suspect]
     Active Substance: AFLIBERCEPT
     Dosage: MOST RECENT DOSE PRIOR EVENT ONSET, ONCE
     Dates: start: 20171207, end: 20171207

REACTIONS (2)
  - Eye haemorrhage [Recovering/Resolving]
  - Endophthalmitis [Recovering/Resolving]

NARRATIVE: CASE EVENT DATE: 201712
